FAERS Safety Report 5231695-0 (Version None)
Quarter: 2007Q1

REPORT INFORMATION
  Report Type: 
  Country: None (occurrence: None)
  Receive Date: 20070206
  Receipt Date: 20070126
  Transmission Date: 20070707
  Serious: Yes (Hospitalization, Other)
  Sender: FDA-Public Use
  Company Number: US-PFIZER INC-2007007567

PATIENT
  Sex: Male
  Weight: 79.4 kg

DRUGS (5)
  1. DAYPRO CAPLET [Suspect]
     Indication: PAIN
     Route: 048
     Dates: start: 20060101, end: 20061119
  2. CRESTOR [Concomitant]
  3. TOPROL-XL [Concomitant]
  4. ASPIRIN [Concomitant]
  5. MOTRIN [Concomitant]

REACTIONS (5)
  - ASTHENIA [None]
  - GASTRITIS [None]
  - GASTROINTESTINAL HAEMORRHAGE [None]
  - SHOCK [None]
  - SYNCOPE [None]
